FAERS Safety Report 18046903 (Version 1)
Quarter: 2020Q3

REPORT INFORMATION
  Report Type: Spontaneous
  Country: GR (occurrence: GR)
  Receive Date: 20200721
  Receipt Date: 20200721
  Transmission Date: 20201103
  Serious: Yes (Hospitalization)
  Sender: FDA-Public Use
  Company Number: GR-TEVA-2020-GR-1802589

PATIENT
  Age: 81 Year
  Sex: Male

DRUGS (5)
  1. CYCLOPHOSPHAMIDE. [Suspect]
     Active Substance: CYCLOPHOSPHAMIDE
     Indication: ACQUIRED HAEMOPHILIA
     Dosage: 100 MILLIGRAM DAILY;
     Route: 048
  2. IMMUNOGLOBULIN G [Concomitant]
     Active Substance: HUMAN IMMUNOGLOBULIN G
     Indication: ACQUIRED HAEMOPHILIA
     Route: 042
  3. GEMCITABINE. [Suspect]
     Active Substance: GEMCITABINE
     Indication: MALIGNANT NEOPLASM OF AMPULLA OF VATER
     Dosage: ON DAY 14 OF HOSPITALISATION
     Route: 042
  4. OXALIPLATIN. [Suspect]
     Active Substance: OXALIPLATIN
     Indication: MALIGNANT NEOPLASM OF AMPULLA OF VATER
     Dosage: ON DAY 14 OF HOSPITALISATION
     Route: 042
  5. PREDNISONE. [Concomitant]
     Active Substance: PREDNISONE
     Indication: ACQUIRED HAEMOPHILIA
     Dosage: 1 MG/KG DAILY;
     Route: 042

REACTIONS (2)
  - Nosocomial infection [Recovered/Resolved]
  - Neutropenia [Recovered/Resolved]
